FAERS Safety Report 9657725 (Version 1)
Quarter: 2013Q4

REPORT INFORMATION
  Report Type: Report from Study
  Country: BR (occurrence: BR)
  Receive Date: 20131030
  Receipt Date: 20131030
  Transmission Date: 20140711
  Serious: Yes (Hospitalization)
  Sender: FDA-Public Use
  Company Number: PHHY2013BR122777

PATIENT
  Sex: Male
  Weight: 70 kg

DRUGS (5)
  1. EXELON PATCH [Suspect]
     Indication: DEMENTIA ALZHEIMER^S TYPE
     Dosage: 9.5 MG (PATCH 10 CM2), DAILY
     Route: 062
  2. EXELON PATCH [Suspect]
     Dosage: 4.6 MG (PATCH 5 CM2), DAILY
     Route: 062
  3. PRESSAT [Concomitant]
     Dosage: UNK UKN, UNK
  4. ENALAPRIL MALEATE [Concomitant]
     Dosage: UNK UKN, UNK
  5. ACETYLSALICYLIC ACID [Concomitant]
     Dosage: UNK UKN, UNK

REACTIONS (4)
  - Sedation [Unknown]
  - Diet refusal [Recovering/Resolving]
  - Hypokinesia [Recovering/Resolving]
  - Dizziness postural [Unknown]
